FAERS Safety Report 14508682 (Version 2)
Quarter: 2018Q2

REPORT INFORMATION
  Report Type: Spontaneous
  Country: US (occurrence: US)
  Receive Date: 20180209
  Receipt Date: 20180413
  Transmission Date: 20180711
  Serious: No
  Sender: FDA-Public Use
  Company Number: US-ASTRAZENECA-2018SE16641

PATIENT
  Age: 29068 Day
  Sex: Female
  Weight: 79.4 kg

DRUGS (2)
  1. BYDUREON [Suspect]
     Active Substance: EXENATIDE
     Indication: TYPE 2 DIABETES MELLITUS
     Dosage: ONCE A WEEK
     Route: 058
     Dates: end: 2016
  2. BYDUREON BCISE [Suspect]
     Active Substance: EXENATIDE
     Indication: TYPE 2 DIABETES MELLITUS
     Route: 058
     Dates: start: 2018

REACTIONS (8)
  - Abdominal mass [Recovered/Resolved]
  - Body height decreased [Unknown]
  - Decreased appetite [Unknown]
  - Wrong technique in device usage process [Unknown]
  - Gastric disorder [Unknown]
  - Weight decreased [Unknown]
  - Pruritus [Unknown]
  - Product quality issue [Unknown]

NARRATIVE: CASE EVENT DATE: 201801
